FAERS Safety Report 21195431 (Version 2)
Quarter: 2022Q3

REPORT INFORMATION
  Report Type: Report from Study
  Country: FR (occurrence: FR)
  Receive Date: 20220810
  Receipt Date: 20220831
  Transmission Date: 20221026
  Serious: Yes (Congenital Anomaly)
  Sender: FDA-Public Use
  Company Number: None

PATIENT

DRUGS (3)
  1. ISENTRESS [Suspect]
     Active Substance: RALTEGRAVIR POTASSIUM
     Dosage: 600 MG/DAY
     Route: 064
     Dates: start: 20220331
  2. TRUVADA [Suspect]
     Active Substance: EMTRICITABINE\TENOFOVIR DISOPROXIL FUMARATE
     Dosage: 200/245 MG/DAY
     Route: 064
     Dates: start: 20220331
  3. BIKTARVY [Suspect]
     Active Substance: BICTEGRAVIR SODIUM\EMTRICITABINE\TENOFOVIR ALAFENAMIDE FUMARATE
     Dosage: 50/200/25 MG/DAY
     Route: 064
     Dates: start: 20220114, end: 202203

REACTIONS (3)
  - Renal hypertrophy [Not Recovered/Not Resolved]
  - Congenital nose malformation [Not Recovered/Not Resolved]
  - Foetal exposure during pregnancy [Unknown]

NARRATIVE: CASE EVENT DATE: 20220501
